FAERS Safety Report 8684058 (Version 3)
Quarter: 2012Q4

REPORT INFORMATION
  Report Type: Report from Study
  Country: BR (occurrence: BR)
  Receive Date: 20120726
  Receipt Date: 20120918
  Transmission Date: 20130627
  Serious: Yes (Hospitalization)
  Sender: FDA-Public Use
  Company Number: BR-US-EMD SERONO, INC.-7148256

PATIENT
  Age: 26 None
  Sex: Female

DRUGS (1)
  1. REBIF [Suspect]
     Indication: RELAPSING-REMITTING MULTIPLE SCLEROSIS
     Dates: start: 20120530, end: 20120716

REACTIONS (3)
  - Multiple sclerosis relapse [Recovering/Resolving]
  - Vomiting [Unknown]
  - Aspiration [Recovered/Resolved]
